FAERS Safety Report 9511326 (Version 2)
Quarter: 2014Q1

REPORT INFORMATION
  Report Type: Spontaneous
  Country: US (occurrence: None)
  Receive Date: 20130305
  Receipt Date: 20140306
  Transmission Date: 20141002
  Serious: Yes (Other)
  Sender: FDA-Public Use
  Company Number: 163-21880-12103291

PATIENT
  Age: 63 Year
  Sex: Female

DRUGS (27)
  1. REVLIMID (LENALIDOMIDE) (10 MILLIGRAM, CAPSULES) [Suspect]
     Indication: PLASMA CELL MYELOMA
     Dosage: 21 IN 28 DAY
     Route: 048
     Dates: start: 20090722
  2. ACYCLOVIR (ACICLOVIR) (TABLETS) [Concomitant]
  3. FENTANYL [Concomitant]
  4. FISH OIL [Concomitant]
  5. GLUCOSAMINE SULFATE [Concomitant]
  6. HYDROCORTISONE [Concomitant]
  7. OXYBUTYNIN HYDROCHLORIDE [Concomitant]
  8. NITROFURANTOIN [Concomitant]
  9. METAMUCIL [Concomitant]
  10. IMODIUM A-D (LOPERAMIDE HYDROCHLORIDE) [Concomitant]
  11. ASPIRIN (ACETYLSALICYLIC ACID) [Concomitant]
  12. EFFEXOR (VENLAFAXINE HYDROCHLORIDE) [Concomitant]
  13. PRAVACHOL (PRAVASTATIN SODIUM) [Concomitant]
  14. EVISTA (RALOXIFENE HYDROCHLORIDE) [Concomitant]
  15. OXYCONTIN (OXYCODONE HYDROCHLORIDE) [Concomitant]
  16. PROMETHAZINE HCL (PROMETHAZINE HYDROCHLORIDE) [Concomitant]
  17. VITAMIN D (ERGOCALCIFEROL) [Concomitant]
  18. FLEXERIL (CYCLOBENZAPRINE HYDROCHLORIDE) [Concomitant]
  19. INDERAL (PROPRANOLOL HYDROCHLORIDE) [Concomitant]
  20. PREMARIN (ESTROGENS CONJUGATED) [Concomitant]
  21. XANAX (ALPRAZOLAM) [Concomitant]
  22. DETROL LA (TOLTERODINE L-TARTRATE) [Concomitant]
  23. PERCOCET (OXYCOCET) [Concomitant]
  24. GLUCOSAMINE W/CHONDROITIN SULFATE [Concomitant]
  25. PRAVASTATIN SODIUM [Concomitant]
  26. VITAMIN B12 (CYANOCOBALAMIN) [Concomitant]
  27. VENLAFAXINE HCL (VENLAFAXINE HYDROCHLORIDE) [Concomitant]

REACTIONS (2)
  - Thrombosis [None]
  - Deep vein thrombosis [None]
